FAERS Safety Report 5473358-2 (Version None)
Quarter: 2007Q4

REPORT INFORMATION
  Report Type: 
  Country: None (occurrence: None)
  Receive Date: 20071001
  Receipt Date: 20070919
  Transmission Date: 20080405
  Serious: Yes (Death, Hospitalization)
  Sender: FDA-Public Use
  Company Number: KR-BRISTOL-MYERS SQUIBB COMPANY-13890454

PATIENT
  Age: 71 Year
  Sex: Male

DRUGS (7)
  1. BLINDED: ABATACEPT [Suspect]
     Indication: RHEUMATOID ARTHRITIS
     Route: 042
     Dates: start: 20070611, end: 20070808
  2. METHOTREXATE SODIUM [Suspect]
     Indication: RHEUMATOID ARTHRITIS
     Route: 048
     Dates: start: 20030922, end: 20070816
  3. PLACEBO [Suspect]
     Indication: RHEUMATOID ARTHRITIS
     Route: 042
     Dates: start: 20070611, end: 20070808
  4. TRIAMCINOLONE [Concomitant]
     Dates: start: 20070201
  5. CIMETIDINE [Concomitant]
     Dates: start: 20030922
  6. HYDROCHLOROTHIAZIDE [Concomitant]
     Dates: start: 20050527
  7. FOLIC ACID [Concomitant]
     Dates: start: 20030922

REACTIONS (3)
  - INTERSTITIAL LUNG DISEASE [None]
  - PNEUMOTHORAX [None]
  - PULMONARY SEPSIS [None]
